FAERS Safety Report 12165030 (Version 1)
Quarter: 2016Q1

REPORT INFORMATION
  Report Type: Report from Study
  Country: US (occurrence: US)
  Receive Date: 20160309
  Receipt Date: 20160309
  Transmission Date: 20160526
  Serious: Yes (Other)
  Sender: FDA-Public Use
  Company Number: US-ABBVIE-15P-163-1498375-00

PATIENT
  Age: 45 Year
  Sex: Female

DRUGS (8)
  1. LUPANETA PACK [Suspect]
     Active Substance: ISOPROPYL ALCOHOL\LEUPROLIDE ACETATE\NORETHINDRONE ACETATE
     Indication: ENDOMETRIOSIS
     Route: 050
     Dates: start: 20151001
  2. ACCOLATE [Concomitant]
     Active Substance: ZAFIRLUKAST
     Indication: ASTHMA
     Route: 048
     Dates: start: 2013
  3. NASAL SPRAY II [Concomitant]
     Indication: HYPERSENSITIVITY
     Dosage: 1 SPRAY AS NEEDED
     Route: 045
     Dates: start: 2014
  4. CLARINEX [Concomitant]
     Active Substance: DESLORATADINE
     Indication: HYPERSENSITIVITY
     Dosage: DAILY AS NEEDED
     Route: 048
     Dates: start: 2013
  5. LUPRON DEPOT [Suspect]
     Active Substance: LEUPROLIDE ACETATE
     Indication: ENDOMETRIOSIS
     Route: 065
     Dates: start: 2010
  6. FINANCEA CREAM [Concomitant]
     Indication: ACNE
     Dosage: UNKNOWN DOSE AS NEEDED
     Route: 061
     Dates: start: 2013
  7. LUPRON DEPOT [Suspect]
     Active Substance: LEUPROLIDE ACETATE
     Route: 065
     Dates: start: 20150928
  8. LUPANETA PACK [Suspect]
     Active Substance: ISOPROPYL ALCOHOL\LEUPROLIDE ACETATE\NORETHINDRONE ACETATE
     Indication: PRODUCT USED FOR UNKNOWN INDICATION
     Dosage: DAILY
     Route: 048
     Dates: start: 20151001

REACTIONS (6)
  - Metrorrhagia [Not Recovered/Not Resolved]
  - Endometriosis [Not Recovered/Not Resolved]
  - Fall [Recovered/Resolved]
  - Endometriosis [Unknown]
  - Wrist fracture [Recovered/Resolved]
  - Hot flush [Recovered/Resolved]

NARRATIVE: CASE EVENT DATE: 2010
